FAERS Safety Report 13434077 (Version 1)
Quarter: 2017Q2

REPORT INFORMATION
  Report Type: Spontaneous
  Country: BE (occurrence: BE)
  Receive Date: 20170412
  Receipt Date: 20170412
  Transmission Date: 20170830
  Serious: Yes (Other)
  Sender: FDA-Public Use
  Company Number: BE-009507513-1704BEL003193

PATIENT
  Age: 77 Year
  Sex: Female
  Weight: 53 kg

DRUGS (3)
  1. HYDROXYUREA. [Suspect]
     Active Substance: HYDROXYUREA
  2. PEGINTRON [Suspect]
     Active Substance: PEGINTERFERON ALFA-2B
     Indication: ESSENTIAL THROMBOCYTHAEMIA
     Dosage: 50 MICROGRAM, UNK
     Dates: start: 201704
  3. ANAGRELIDE HYDROCHLORIDE. [Suspect]
     Active Substance: ANAGRELIDE HYDROCHLORIDE

REACTIONS (4)
  - Drug intolerance [Unknown]
  - Acute myocardial infarction [Unknown]
  - Dermatomyositis [Unknown]
  - Product use in unapproved indication [Unknown]

NARRATIVE: CASE EVENT DATE: 201704
